FAERS Safety Report 6304903-2 (Version None)
Quarter: 2009Q3

REPORT INFORMATION
  Report Type: 
  Country: None (occurrence: None)
  Receive Date: 20090811
  Receipt Date: 20090731
  Transmission Date: 20100115
  Serious: Yes (Hospitalization, Other)
  Sender: FDA-Public Use
  Company Number: FR-ELI_LILLY_AND_COMPANY-FR200907007204

PATIENT
  Sex: Female

DRUGS (4)
  1. PROZAC [Suspect]
     Indication: DEPRESSION
     Dosage: 20 MG, 2/D
     Route: 048
  2. XANAX [Concomitant]
     Indication: DEPRESSION
     Dosage: 0.25 MG, DAILY (1/D)
     Route: 048
  3. LEXOMIL [Concomitant]
     Indication: DEPRESSION
     Route: 048
  4. KARDEGIC [Concomitant]
     Dates: end: 20090301

REACTIONS (8)
  - DELIRIUM TREMENS [None]
  - DEMENTIA [None]
  - ESCHERICHIA URINARY TRACT INFECTION [None]
  - FALL [None]
  - FEMORAL NECK FRACTURE [None]
  - OVERDOSE [None]
  - RENAL FUNCTION TEST ABNORMAL [None]
  - SEPSIS [None]
